FAERS Safety Report 20711958 (Version 3)
Quarter: 2022Q2

REPORT INFORMATION
  Report Type: Report from Study
  Country: US (occurrence: US)
  Receive Date: 20220414
  Receipt Date: 20220615
  Transmission Date: 20220720
  Serious: Yes (Hospitalization, Other)
  Sender: FDA-Public Use
  Company Number: US-BIOGEN-2022BI01113653

PATIENT
  Age: 61 Year
  Sex: Female
  Weight: 103.33 kg

DRUGS (3)
  1. TYSABRI [Suspect]
     Active Substance: NATALIZUMAB
     Indication: Multiple sclerosis
     Route: 065
     Dates: start: 2010, end: 202103
  2. TYSABRI [Suspect]
     Active Substance: NATALIZUMAB
     Dosage: INFUSE OVER AN HOUR
     Route: 042
  3. TYSABRI [Suspect]
     Active Substance: NATALIZUMAB
     Route: 065
     Dates: start: 20080429, end: 20210322

REACTIONS (21)
  - Multiple sclerosis [Unknown]
  - Hemiplegia [Unknown]
  - Insomnia [Unknown]
  - Hyperlipidaemia [Unknown]
  - Type 1 diabetes mellitus [Unknown]
  - Peripheral vascular disorder [Unknown]
  - Acute respiratory failure [Unknown]
  - Type 2 diabetes mellitus [Unknown]
  - Major depression [Unknown]
  - Lung neoplasm malignant [Unknown]
  - Drug dependence [Unknown]
  - Hypertensive nephropathy [Unknown]
  - Obesity [Unknown]
  - Persistent depressive disorder [Unknown]
  - Aphasia [Unknown]
  - Constipation [Unknown]
  - Dysphagia [Unknown]
  - Chronic kidney disease [Unknown]
  - Decubitus ulcer [Unknown]
  - COVID-19 [Unknown]
  - Rash [Unknown]

NARRATIVE: CASE EVENT DATE: 20190802
